FAERS Safety Report 10159508 (Version 1)
Quarter: 2014Q2

REPORT INFORMATION
  Report Type: Spontaneous
  Country: US (occurrence: None)
  Receive Date: 20140507
  Receipt Date: 20140507
  Transmission Date: 20141212
  Serious: Yes (Life-Threatening, Hospitalization)
  Sender: FDA-Public Use
  Company Number: None

PATIENT
  Age: 48 Year
  Sex: Male
  Weight: 106.6 kg

DRUGS (1)
  1. CITALOPRAM [Suspect]
     Indication: CRYING

REACTIONS (1)
  - Heart rate decreased [None]
